FAERS Safety Report 8392448-8 (Version None)
Quarter: 2012Q2

REPORT INFORMATION
  Report Type: 
  Country: None (occurrence: None)
  Receive Date: 20120529
  Receipt Date: 20120519
  Transmission Date: 20120825
  Serious: No
  Sender: FDA-Public Use
  Company Number: US-BAYER-2012-050389

PATIENT
  Sex: Female

DRUGS (3)
  1. NAPROXEN SODIUM [Suspect]
     Indication: TOOTHACHE
     Dosage: 2 DF EVERY 2-3 HOURS
     Route: 048
  2. VICODIN [Concomitant]
     Dosage: 500 MG, UNK
  3. IBUPROFEN [Concomitant]
     Dosage: 500 MG, UNK

REACTIONS (1)
  - NO ADVERSE EVENT [None]
